FAERS Safety Report 5162837-3 (Version None)
Quarter: 2006Q4

REPORT INFORMATION
  Report Type: 
  Country: None (occurrence: None)
  Receive Date: 20061201
  Receipt Date: 20010220
  Transmission Date: 20070319
  Serious: Yes (Hospitalization)
  Sender: FDA-Public Use
  Company Number: FR-GLAXOSMITHKLINE-B0099876A

PATIENT
  Sex: Male
  Weight: 4.1 kg

DRUGS (5)
  1. ZIDOVUDINE [Suspect]
     Indication: HUMAN IMMUNODEFICIENCY VIRUS TRANSMISSION
     Route: 048
     Dates: start: 19950324
  2. RETROVIR [Suspect]
     Indication: HIV INFECTION
     Route: 048
     Dates: end: 19950324
  3. AMOXICILLIN [Concomitant]
     Indication: INFECTION PROPHYLAXIS
  4. IRON SALT [Concomitant]
  5. AUGMENTIN '125' [Concomitant]
     Indication: SINUSITIS

REACTIONS (4)
  - GRAND MAL CONVULSION [None]
  - NEUTROPENIA [None]
  - RESTLESSNESS [None]
  - UMBILICAL HERNIA [None]
